FAERS Safety Report 9672431 (Version 1)
Quarter: 2013Q4

REPORT INFORMATION
  Report Type: Spontaneous
  Country: BE (occurrence: None)
  Receive Date: 20131105
  Receipt Date: 20131105
  Transmission Date: 20140711
  Serious: Yes (Hospitalization)
  Sender: FDA-Public Use
  Company Number: AUR-APL-2013-09218

PATIENT
  Age: 31 Year
  Sex: Female

DRUGS (1)
  1. LAMOTRIGINE (LAMOTRIGINE) [Suspect]

REACTIONS (10)
  - Drug reaction with eosinophilia and systemic symptoms [None]
  - Pyrexia [None]
  - Lymphadenopathy [None]
  - Arthralgia [None]
  - Nausea [None]
  - Vomiting [None]
  - Dermatitis bullous [None]
  - Systemic inflammatory response syndrome [None]
  - Thrombocytopenia [None]
  - Lymphopenia [None]
